FAERS Safety Report 4338509-1 (Version None)
Quarter: 2004Q2

REPORT INFORMATION
  Report Type: 
  Country: None (occurrence: None)
  Receive Date: 20040414
  Receipt Date: 20040407
  Transmission Date: 20050107
  Serious: Yes (Hospitalization)
  Sender: FDA-Public Use
  Company Number: FR-GLAXOSMITHKLINE-B0329204A

PATIENT
  Age: 31 Year
  Sex: Female

DRUGS (2)
  1. MALARONE [Suspect]
     Indication: MALARIA PROPHYLAXIS
     Dosage: 1TAB PER DAY
     Route: 048
     Dates: start: 20031215, end: 20040102
  2. CYPROTERON ACETAT + ETHINYLESTRADIOL [Concomitant]
     Indication: ORAL CONTRACEPTION
     Route: 048

REACTIONS (2)
  - ABORTION MISSED [None]
  - INTRA-UTERINE DEATH [None]
